FAERS Safety Report 4772969-7 (Version None)
Quarter: 2005Q3

REPORT INFORMATION
  Report Type: 
  Country: None (occurrence: None)
  Receive Date: 20050916
  Receipt Date: 20050907
  Transmission Date: 20060218
  Serious: Yes (Hospitalization, Other)
  Sender: FDA-Public Use
  Company Number: 2005124606

PATIENT
  Age: 53 Year
  Sex: Female

DRUGS (3)
  1. NEURONTIN [Suspect]
     Indication: PERIARTHRITIS
     Dosage: 600 MG (600 MG, 1 IN 1 D)
     Dates: end: 20050301
  2. ACETAMINOPHEN [Concomitant]
  3. BRUFEN (IBUPROFEN) [Concomitant]

REACTIONS (9)
  - ANAEMIA [None]
  - BONE MARROW DEPRESSION [None]
  - FATIGUE [None]
  - LIP DISORDER [None]
  - MYELODYSPLASTIC SYNDROME [None]
  - NAUSEA [None]
  - NIPPLE DISORDER [None]
  - RASH ERYTHEMATOUS [None]
  - SENSORY DISTURBANCE [None]
